FAERS Safety Report 7656562-4 (Version None)
Quarter: 2011Q3

REPORT INFORMATION
  Report Type: 
  Country: None (occurrence: None)
  Receive Date: 20110804
  Receipt Date: 20110211
  Transmission Date: 20111222
  Serious: No
  Sender: FDA-Public Use
  Company Number: US-BAUSCH-2011BL000960

PATIENT
  Age: 74 Year
  Sex: Female

DRUGS (3)
  1. SOOTHE XP [Concomitant]
     Indication: DRY EYE
     Route: 047
  2. OPCON-A [Suspect]
     Indication: EYE ALLERGY
     Route: 047
     Dates: start: 20101201, end: 20101201
  3. ADVANCED EYE RELIEF/EYE WASH [Concomitant]
     Indication: EYE IRRIGATION
     Route: 047

REACTIONS (1)
  - MYDRIASIS [None]
